FAERS Safety Report 5586413-3 (Version None)
Quarter: 2008Q1

REPORT INFORMATION
  Report Type: 
  Country: None (occurrence: None)
  Receive Date: 20080107
  Receipt Date: 20080107
  Transmission Date: 20080703
  Serious: Yes (Hospitalization)
  Sender: FDA-Public Use
  Company Number: None

PATIENT
  Age: 84 Year
  Sex: Male
  Weight: 88 kg

DRUGS (1)
  1. CIPROFLOXACIN [Suspect]
     Dosage: 750MG BID PO
     Route: 048
     Dates: start: 20071107, end: 20071217

REACTIONS (5)
  - AGITATION [None]
  - BELLIGERENCE [None]
  - CONDITION AGGRAVATED [None]
  - DEMENTIA [None]
  - MENTAL STATUS CHANGES [None]
